FAERS Safety Report 5204119-7 (Version None)
Quarter: 2007Q1

REPORT INFORMATION
  Report Type: 
  Country: None (occurrence: None)
  Receive Date: 20070110
  Receipt Date: 20051130
  Transmission Date: 20070707
  Serious: No
  Sender: FDA-Public Use
  Company Number: US-BRISTOL-MYERS SQUIBB COMPANY-13200399

PATIENT
  Age: 90 Year
  Sex: Female

DRUGS (8)
  1. ABILIFY [Suspect]
     Indication: AGITATION
     Route: 048
     Dates: start: 20050630
  2. ABILIFY [Suspect]
     Indication: PSYCHOTIC DISORDER
     Route: 048
     Dates: start: 20050630
  3. ABILIFY [Suspect]
     Indication: DEMENTIA
     Route: 048
     Dates: start: 20050630
  4. ATIVAN [Concomitant]
  5. NARDIL [Concomitant]
  6. ALTACE [Concomitant]
  7. ATENOLOL [Concomitant]
  8. SYNTHROID [Concomitant]

REACTIONS (1)
  - BLOOD TEST ABNORMAL [None]
